FAERS Safety Report 9435090 (Version 2)
Quarter: 2013Q3

REPORT INFORMATION
  Report Type: Spontaneous
  Country: IT (occurrence: IT)
  Receive Date: 20130801
  Receipt Date: 20130930
  Transmission Date: 20140515
  Serious: Yes (Other)
  Sender: FDA-Public Use
  Company Number: IT-TEVA-417778ISR

PATIENT
  Age: 62 Year
  Sex: Female

DRUGS (1)
  1. CISPLATIN [Suspect]
     Indication: LUNG NEOPLASM MALIGNANT
     Dosage: 30 MILLIGRAM DAILY;
     Route: 042
     Dates: start: 20130625, end: 20130625

REACTIONS (8)
  - Diarrhoea [Unknown]
  - Hypotension [Unknown]
  - Agitation [Unknown]
  - Erythema [Unknown]
  - Abdominal pain upper [Unknown]
  - Nausea [Unknown]
  - Abdominal pain upper [Unknown]
  - Erythema [Unknown]
